FAERS Safety Report 6940862-7 (Version None)
Quarter: 2010Q3

REPORT INFORMATION
  Report Type: 
  Country: None (occurrence: None)
  Receive Date: 20100825
  Receipt Date: 20100817
  Transmission Date: 20110219
  Serious: Yes (Other)
  Sender: FDA-Public Use
  Company Number: US-AMGEN-QUU427928

PATIENT
  Sex: Female
  Weight: 73 kg

DRUGS (2)
  1. NPLATE [Suspect]
     Indication: IDIOPATHIC THROMBOCYTOPENIC PURPURA
     Dates: start: 20091201, end: 20100701
  2. PREDNISONE [Concomitant]

REACTIONS (3)
  - BONE MARROW RETICULIN FIBROSIS [None]
  - RED BLOOD CELL ABNORMALITY [None]
  - THERAPEUTIC RESPONSE DECREASED [None]
